FAERS Safety Report 12521496 (Version 4)
Quarter: 2016Q3

REPORT INFORMATION
  Report Type: Spontaneous
  Country: US (occurrence: US)
  Receive Date: 20160701
  Receipt Date: 20160803
  Transmission Date: 20161109
  Serious: Yes (Hospitalization, Other)
  Sender: FDA-Public Use
  Company Number: US-BIOGEN-2015BI122126

PATIENT
  Sex: Male

DRUGS (1)
  1. AVONEX [Suspect]
     Active Substance: INTERFERON BETA-1A
     Indication: MULTIPLE SCLEROSIS
     Route: 030
     Dates: start: 20040406, end: 20040630

REACTIONS (20)
  - Road traffic accident [Recovered/Resolved]
  - Gastrooesophageal reflux disease [Unknown]
  - Limb traumatic amputation [Not Recovered/Not Resolved]
  - Cognitive disorder [Not Recovered/Not Resolved]
  - Fatigue [Not Recovered/Not Resolved]
  - General physical health deterioration [Not Recovered/Not Resolved]
  - Suicidal ideation [Recovered/Resolved]
  - Memory impairment [Not Recovered/Not Resolved]
  - Anxiety [Recovered/Resolved]
  - Chest discomfort [Unknown]
  - Cardiac disorder [Unknown]
  - Depressed mood [Not Recovered/Not Resolved]
  - Depression [Recovered/Resolved]
  - Drug abuse [Unknown]
  - Influenza like illness [Recovered/Resolved]
  - Heart rate irregular [Not Recovered/Not Resolved]
  - Confusional state [Recovered/Resolved]
  - Cardiac failure [Unknown]
  - Alcohol abuse [Unknown]
  - Back disorder [Not Recovered/Not Resolved]
